FAERS Safety Report 23361655 (Version 1)
Quarter: 2024Q1

REPORT INFORMATION
  Report Type: Report from Study
  Country: US (occurrence: US)
  Receive Date: 20240103
  Receipt Date: 20240103
  Transmission Date: 20240410
  Serious: Yes (Other)
  Sender: FDA-Public Use
  Company Number: US-EXELIXIS-CABO-23072267

PATIENT
  Sex: Male
  Weight: 82.54 kg

DRUGS (13)
  1. CABOMETYX [Suspect]
     Active Substance: CABOZANTINIB S-MALATE
     Indication: Renal cancer
     Dosage: 60 MG, QD
     Route: 048
     Dates: start: 202112
  2. CABOMETYX [Suspect]
     Active Substance: CABOZANTINIB S-MALATE
     Dosage: 60 MG, QD
     Route: 048
  3. ATORVASTATIN CALCIUM [Concomitant]
     Active Substance: ATORVASTATIN CALCIUM
  4. LANTUS [Concomitant]
     Active Substance: INSULIN GLARGINE
  5. NOVOLOG [Concomitant]
     Active Substance: INSULIN ASPART
  6. FUROSEMIDE [Concomitant]
     Active Substance: FUROSEMIDE
  7. ASPIRIN [Concomitant]
     Active Substance: ASPIRIN
  8. SYNTHROID [Concomitant]
     Active Substance: LEVOTHYROXINE SODIUM
  9. IRON [Concomitant]
     Active Substance: IRON
  10. BENADRYL [Concomitant]
     Active Substance: DIPHENHYDRAMINE HYDROCHLORIDE
  11. DOCUSATE SODIUM [Concomitant]
     Active Substance: DOCUSATE SODIUM
  12. CARVEDILOL [Concomitant]
     Active Substance: CARVEDILOL
  13. ONDANSETRON HYDROCHLORIDE [Concomitant]
     Active Substance: ONDANSETRON HYDROCHLORIDE

REACTIONS (1)
  - Adverse drug reaction [Unknown]
